FAERS Safety Report 14755688 (Version 26)
Quarter: 2022Q1

REPORT INFORMATION
  Report Type: Report from Study
  Country: GB (occurrence: GB)
  Receive Date: 20180413
  Receipt Date: 20220310
  Transmission Date: 20220423
  Serious: Yes (Death, Hospitalization, Other)
  Sender: FDA-Public Use
  Company Number: GB-BRISTOL-MYERS SQUIBB COMPANY-BMS-2018-032945

PATIENT
  Age: 68 Year
  Sex: Female
  Weight: 79.9 kg

DRUGS (33)
  1. NIVOLUMAB [Suspect]
     Active Substance: NIVOLUMAB
     Indication: Malignant melanoma
     Dosage: 80 MILLIGRAM, Q3WK
     Route: 065
     Dates: start: 20180125, end: 20180125
  2. NIVOLUMAB [Suspect]
     Active Substance: NIVOLUMAB
     Dosage: 80 MILLIGRAM, Q3WK
     Route: 065
     Dates: start: 20180215, end: 20180215
  3. NIVOLUMAB [Suspect]
     Active Substance: NIVOLUMAB
     Dosage: 80 MILLIGRAM, Q3WK
     Route: 065
     Dates: start: 20180308, end: 20180308
  4. NIVOLUMAB [Suspect]
     Active Substance: NIVOLUMAB
     Dosage: 80 MILLIGRAM, Q3WK
     Route: 065
     Dates: start: 20180329, end: 20190624
  5. IPILIMUMAB [Suspect]
     Active Substance: IPILIMUMAB
     Indication: Malignant melanoma
     Dosage: 240 MILLIGRAM, Q3WK
     Route: 065
     Dates: start: 20180125, end: 20180125
  6. IPILIMUMAB [Suspect]
     Active Substance: IPILIMUMAB
     Dosage: 240 MILLIGRAM, Q3WK
     Route: 065
     Dates: start: 20180215, end: 20180215
  7. IPILIMUMAB [Suspect]
     Active Substance: IPILIMUMAB
     Dosage: 240 MILLIGRAM, Q3WK
     Route: 065
     Dates: start: 20180308, end: 20180308
  8. IPILIMUMAB [Suspect]
     Active Substance: IPILIMUMAB
     Dosage: 240 MILLIGRAM, Q3WK
     Route: 065
     Dates: start: 20180329, end: 20190624
  9. METHYLPREDNISOLONE [Concomitant]
     Active Substance: METHYLPREDNISOLONE
     Indication: Product used for unknown indication
     Dosage: UNK
     Route: 042
     Dates: start: 20180406, end: 20180406
  10. MYCOPHENOLATE MOFETIL [Concomitant]
     Active Substance: MYCOPHENOLATE MOFETIL
     Indication: Product used for unknown indication
     Dosage: UNK
     Route: 042
     Dates: start: 20180408, end: 20180509
  11. METHYLPREDNISOLONE SODIUM SUCCINATE [Concomitant]
     Active Substance: METHYLPREDNISOLONE SODIUM SUCCINATE
     Indication: Product used for unknown indication
     Dosage: 500 MILLIGRAM, QD
     Route: 042
     Dates: start: 20180407, end: 20180421
  12. PREDNISOLONE [Concomitant]
     Active Substance: PREDNISOLONE
     Indication: Prophylaxis
     Dosage: 20 MILLIGRAM, QD
     Route: 048
     Dates: start: 20180426, end: 20180428
  13. PREDNISOLONE [Concomitant]
     Active Substance: PREDNISOLONE
     Dosage: 15 MILLIGRAM, QD
     Route: 048
     Dates: start: 20180428, end: 20190624
  14. HYDROCORTISONE [Concomitant]
     Active Substance: HYDROCORTISONE
     Indication: Prophylaxis
     Dosage: 30 MILLIGRAM, QD
     Route: 042
     Dates: start: 20180429, end: 20180430
  15. ACETAMINOPHEN [Concomitant]
     Active Substance: ACETAMINOPHEN
     Indication: Product used for unknown indication
     Dosage: 1 GRAM, PER NEEDED
     Route: 048
     Dates: start: 2014
  16. ACETAMINOPHEN [Concomitant]
     Active Substance: ACETAMINOPHEN
     Dosage: 1000 MILLIGRAM, QD
     Route: 042
     Dates: start: 20180401, end: 20190624
  17. ACETAMINOPHEN [Concomitant]
     Active Substance: ACETAMINOPHEN
     Dosage: 1000 MILLIGRAM, QD
     Route: 042
     Dates: start: 20180401, end: 201805
  18. DALTEPARIN [Concomitant]
     Active Substance: DALTEPARIN
     Indication: Deep vein thrombosis
     Dosage: 5000 UNIT, QD
     Route: 030
     Dates: start: 20180331, end: 20180406
  19. DALTEPARIN [Concomitant]
     Active Substance: DALTEPARIN
     Indication: Pulmonary embolism
     Dosage: 5000 INTERNATIONAL UNIT, QD
     Route: 030
     Dates: start: 20180411, end: 20180522
  20. DALTEPARIN [Concomitant]
     Active Substance: DALTEPARIN
     Indication: Prophylaxis
  21. RANITIDINE [Concomitant]
     Active Substance: RANITIDINE
     Indication: Product used for unknown indication
     Dosage: 50 MILLIGRAM, Q8H
     Route: 042
     Dates: start: 20180407, end: 20180409
  22. RANITIDINE [Concomitant]
     Active Substance: RANITIDINE
     Indication: Prophylaxis
  23. VITAMIN K [Concomitant]
     Active Substance: PHYTONADIONE
     Indication: Product used for unknown indication
     Dosage: 10 MILLIGRAM, QD
     Route: 048
     Dates: start: 20180406, end: 20180407
  24. FRESUBIN ORIGINAL [Concomitant]
     Indication: Product used for unknown indication
     Dosage: 1 LITER, QD
     Route: 042
     Dates: start: 20180410, end: 20180410
  25. SODIUM PHOSPHATE [Concomitant]
     Active Substance: SODIUM PHOSPHATE
     Indication: Product used for unknown indication
     Dosage: 50 MILLILITER, QD
     Route: 048
     Dates: start: 20180408, end: 20180409
  26. PROBIOTIC [BIFIDOBACTERIUM INFANTIS;LACTOBACILLUS ACIDOPHILUS] [Concomitant]
     Indication: Weight increased
     Dosage: SACHET DAILY
     Route: 048
     Dates: start: 20180330, end: 20190624
  27. ONDANSETRON [Concomitant]
     Active Substance: ONDANSETRON
     Indication: Product used for unknown indication
     Dosage: 4 MILLIGRAM, QD
     Route: 048
     Dates: start: 20180409, end: 20180414
  28. NYSTATIN [Concomitant]
     Active Substance: NYSTATIN
     Indication: Product used for unknown indication
     Dosage: 100000 INTERNATIONAL UNIT, QD
     Route: 048
     Dates: start: 20180405, end: 20180412
  29. MEROPENEM [Concomitant]
     Active Substance: MEROPENEM
     Indication: Product used for unknown indication
     Dosage: 500 MILLIGRAM, QD
     Route: 042
     Dates: start: 20180407, end: 20180409
  30. PABRINEX [ASCORBIC ACID;GLUCOSE;NICOTINAMIDE;PYRIDOXINE HYDROCHLORIDE; [Concomitant]
     Indication: Prophylaxis
     Dosage: UNK, Q8H, 2 PAIRS
     Route: 042
     Dates: start: 20180407, end: 20180409
  31. MAGNESIUM SULFATE [Concomitant]
     Active Substance: MAGNESIUM SULFATE
     Indication: Product used for unknown indication
     Dosage: 5 GRAM, QD
     Route: 048
     Dates: start: 20180408, end: 20180409
  32. VANCOMYCIN [Concomitant]
     Active Substance: VANCOMYCIN
     Indication: Product used for unknown indication
     Dosage: 84 MILLIGRAM, QH
     Route: 042
     Dates: start: 20180406, end: 20180409
  33. HALOPERIDOL [Concomitant]
     Active Substance: HALOPERIDOL
     Indication: Product used for unknown indication
     Dosage: 500 MILLIGRAM, QD
     Route: 042
     Dates: start: 20180406, end: 20180409

REACTIONS (16)
  - Malignant neoplasm progression [Fatal]
  - Aspartate aminotransferase increased [Recovered/Resolved]
  - Systemic inflammatory response syndrome [Recovered/Resolved]
  - Hypotension [Recovered/Resolved]
  - Alanine aminotransferase increased [Recovered/Resolved]
  - Rash [Unknown]
  - Sepsis [Unknown]
  - Decreased appetite [Recovered/Resolved]
  - Blood magnesium decreased [Unknown]
  - International normalised ratio increased [Unknown]
  - Secretion discharge [Unknown]
  - Blood phosphorus decreased [Unknown]
  - Candida infection [Unknown]
  - Acidosis [Unknown]
  - Dyspepsia [Unknown]
  - Nausea [Unknown]

NARRATIVE: CASE EVENT DATE: 20180329
